FAERS Safety Report 12737593 (Version 1)
Quarter: 2016Q3

REPORT INFORMATION
  Report Type: Other
  Country: US (occurrence: US)
  Receive Date: 20160912
  Receipt Date: 20160912
  Transmission Date: 20161109
  Serious: Yes (Other)
  Sender: FDA-Public Use
  Company Number: US-B. BRAUN MEDICAL INC.-1057251

PATIENT
  Age: 8 Year
  Sex: Male

DRUGS (5)
  1. HEPARIN SODIUM AND DEXTROSE [Suspect]
     Active Substance: HEPARIN SODIUM
     Route: 042
  2. METHYLPREDNISOLONE. [Concomitant]
     Active Substance: METHYLPREDNISOLONE
     Route: 042
  3. IMMUNOGLOBULIN INFUSION [Concomitant]
     Route: 042
  4. BORTEZOMIB [Concomitant]
     Active Substance: BORTEZOMIB
     Route: 042
  5. RITUXIMAB [Concomitant]
     Active Substance: RITUXIMAB
     Route: 042

REACTIONS (2)
  - Heparin-induced thrombocytopenia [None]
  - Thrombosis in device [None]
